FAERS Safety Report 22592840 (Version 2)
Quarter: 2023Q2

REPORT INFORMATION
  Report Type: Spontaneous
  Country: US (occurrence: US)
  Receive Date: 20230613
  Receipt Date: 20230616
  Transmission Date: 20230721
  Serious: No
  Sender: FDA-Public Use
  Company Number: US-002147023-NVSC2023US134329

PATIENT
  Age: 69 Year
  Sex: Female

DRUGS (3)
  1. AZITHROMYCIN [Suspect]
     Active Substance: AZITHROMYCIN
     Indication: Product used for unknown indication
     Dosage: 250 MG, QD
     Route: 048
     Dates: end: 20230407
  2. ETHAMBUTOL [Suspect]
     Active Substance: ETHAMBUTOL HYDROCHLORIDE
     Indication: Product used for unknown indication
     Dosage: 600 MG, QD
     Route: 048
     Dates: end: 20230407
  3. RIFABUTIN [Suspect]
     Active Substance: RIFABUTIN
     Indication: Product used for unknown indication
     Dosage: UNK
     Route: 065
     Dates: end: 20230407

REACTIONS (5)
  - Weight decreased [Unknown]
  - Condition aggravated [Unknown]
  - Hypertransaminasaemia [Unknown]
  - Decreased appetite [Recovering/Resolving]
  - Pyrexia [Recovered/Resolved]
